FAERS Safety Report 19515005 (Version 5)
Quarter: 2021Q4

REPORT INFORMATION
  Report Type: Report from Study
  Country: US (occurrence: US)
  Receive Date: 20210709
  Receipt Date: 20211222
  Transmission Date: 20220303
  Serious: No
  Sender: FDA-Public Use
  Company Number: NVSC2021US141204

PATIENT
  Sex: Male

DRUGS (1)
  1. ENTRESTO [Suspect]
     Active Substance: SACUBITRIL\VALSARTAN
     Indication: Product used for unknown indication
     Dosage: 1 DF, BID, (49/51 MG)
     Route: 048
     Dates: start: 202106

REACTIONS (4)
  - Weight fluctuation [Unknown]
  - Sinus congestion [Not Recovered/Not Resolved]
  - Memory impairment [Unknown]
  - Blood triglycerides increased [Unknown]
